FAERS Safety Report 23566861 (Version 1)
Quarter: 2024Q1

REPORT INFORMATION
  Report Type: Spontaneous
  Country: US (occurrence: US)
  Receive Date: 20240226
  Receipt Date: 20240226
  Transmission Date: 20240409
  Serious: No
  Sender: FDA-Public Use
  Company Number: US-AMNEAL PHARMACEUTICALS-2023-AMRX-02296

PATIENT
  Sex: Female

DRUGS (6)
  1. RYTARY [Suspect]
     Active Substance: CARBIDOPA\LEVODOPA
     Indication: Product used for unknown indication
     Dosage: 23.75-95MG,  4 CAPSULES BY MOUTH THREE TIMES A DAY AND TAKE 2 CAPSULES AT BEDTIME
     Route: 048
  2. RYTARY [Suspect]
     Active Substance: CARBIDOPA\LEVODOPA
     Dosage: 36.25-145MG  TAKE 2 CAPSULES BY MOUTH FOUR TIMES A DAY
     Route: 048
     Dates: start: 20230622
  3. RYTARY [Suspect]
     Active Substance: CARBIDOPA\LEVODOPA
     Dosage: 23.75-95MG,  4 CAPSULES BY MOUTH THREE TIMES A DAY AND TAKE 2 CAPSULES AT BEDTIME
     Route: 048
  4. RYTARY [Suspect]
     Active Substance: CARBIDOPA\LEVODOPA
     Dosage: 36.25/145 MG,  2 CAPSULES BY MOUTH FOUR TIMES A DAY
     Route: 048
  5. RYTARY [Suspect]
     Active Substance: CARBIDOPA\LEVODOPA
     Dosage: 36.25/145 MG,  2 CAPSULES BY MOUTH EVERY 4 HOURS (TOTAL 8)
     Route: 048
     Dates: start: 20240105
  6. RYTARY [Suspect]
     Active Substance: CARBIDOPA\LEVODOPA
     Dosage: 36.25/145 MG,  2 CAPSULES BY MOUTH FOUR TIMES A DAY
     Route: 048
     Dates: start: 20240112

REACTIONS (1)
  - Dry mouth [Unknown]
